FAERS Safety Report 9803376 (Version 3)
Quarter: 2014Q1

REPORT INFORMATION
  Report Type: Report from Study
  Country: CZ (occurrence: CZ)
  Receive Date: 20140108
  Receipt Date: 20140113
  Transmission Date: 20141002
  Serious: Yes (Death)
  Sender: FDA-Public Use
  Company Number: PHHY2014CZ001603

PATIENT
  Sex: 0

DRUGS (5)
  1. IMATINIB [Suspect]
     Indication: CHRONIC MYELOID LEUKAEMIA
     Dosage: 400 MG, DAILY
     Dates: start: 20110419, end: 20110718
  2. IMATINIB [Suspect]
     Dosage: 400 MG, DAILY
     Dates: start: 20110802, end: 20110926
  3. IMATINIB [Suspect]
     Dosage: 200 MG, DAILY
     Dates: start: 20111010, end: 20120924
  4. IMATINIB [Suspect]
     Dosage: 200 MG, DAILY
     Dates: start: 20121020
  5. IMATINIB [Suspect]
     Dosage: 200 MG, DAILY
     Dates: start: 20130103

REACTIONS (1)
  - Death [Fatal]
